FAERS Safety Report 13368252 (Version 1)
Quarter: 2017Q1

REPORT INFORMATION
  Report Type: Spontaneous
  Country: US (occurrence: US)
  Receive Date: 20170324
  Receipt Date: 20170324
  Transmission Date: 20170429
  Serious: No
  Sender: FDA-Public Use
  Company Number: US-B.I. PHARMACEUTICALS,INC./RIDGEFIELD-2017-BI-015983

PATIENT
  Age: 81 Year
  Sex: Female

DRUGS (4)
  1. DILT-XR [Concomitant]
     Active Substance: DILTIAZEM
     Indication: HYPERTENSION
     Dosage: ONCE DAILY;  FORM STRENGTH: 120MG; FORMULATION: TABLET
     Route: 048
  2. ATROVENT [Suspect]
     Active Substance: IPRATROPIUM BROMIDE
     Indication: CHRONIC OBSTRUCTIVE PULMONARY DISEASE
     Dosage: 2 PUFFS ONCE DAILY;  FORM STRENGTH: 17 MCG; FORMULATION: INHALATION AEROSOL? ADMINISTRATION CORRECT?
     Route: 055
     Dates: start: 20170317, end: 20170317
  3. WARFARIN [Concomitant]
     Active Substance: WARFARIN
     Indication: ATRIAL FIBRILLATION
     Route: 065
  4. ISOSORBIDE. [Concomitant]
     Active Substance: ISOSORBIDE
     Indication: ATRIAL FIBRILLATION
     Dosage: ONCE DAILY;  FORM STRENGTH: 30MG; FORMULATION: TABLET
     Route: 048

REACTIONS (2)
  - Vision blurred [Recovered/Resolved]
  - Chest discomfort [Recovered/Resolved]

NARRATIVE: CASE EVENT DATE: 20170317
